FAERS Safety Report 16265763 (Version 2)
Quarter: 2019Q2

REPORT INFORMATION
  Report Type: Spontaneous
  Country: US (occurrence: US)
  Receive Date: 20190502
  Receipt Date: 20190502
  Transmission Date: 20190711
  Serious: Yes (Hospitalization)
  Sender: FDA-Public Use
  Company Number: US-CELGENEUS-USA-20190410419

PATIENT
  Age: 59 Year
  Sex: Male

DRUGS (1)
  1. POMALYST [Suspect]
     Active Substance: POMALIDOMIDE
     Indication: PLASMA CELL MYELOMA
     Dosage: 4 MILLIGRAM
     Route: 048

REACTIONS (6)
  - Decubitus ulcer [Recovered/Resolved]
  - Respiratory failure [Recovered/Resolved]
  - Staphylococcal infection [Recovered/Resolved]
  - Influenza [Recovered/Resolved]
  - Chronic obstructive pulmonary disease [Recovered/Resolved]
  - Pneumonia [Recovered/Resolved]

NARRATIVE: CASE EVENT DATE: 20190216
